FAERS Safety Report 4610628-1 (Version None)
Quarter: 2005Q1

REPORT INFORMATION
  Report Type: 
  Country: None (occurrence: None)
  Receive Date: 20050316
  Receipt Date: 20050307
  Transmission Date: 20050727
  Serious: Yes (Hospitalization)
  Sender: FDA-Public Use
  Company Number: 05-03-0358

PATIENT
  Age: 46 Year
  Sex: Female

DRUGS (7)
  1. COLCHICINE W/PROBENECID INJECTABLE SOLUTION [Suspect]
     Indication: PAIN
     Dosage: }20, 2MG DOSES INTRAVENOUS
     Route: 042
  2. PHENYTOIN [Concomitant]
  3. MULTI-VITAMINS [Concomitant]
  4. CALCIUM GLUCONATE [Concomitant]
  5. VITAMIN E [Concomitant]
  6. COENZYME Q10 [Concomitant]
  7. VITAMIN C [Concomitant]

REACTIONS (23)
  - ABDOMINAL PAIN [None]
  - ASTHENIA [None]
  - BLOOD CREATINE PHOSPHOKINASE INCREASED [None]
  - BLOOD CREATININE INCREASED [None]
  - BURNING SENSATION [None]
  - DIARRHOEA [None]
  - DRUG TOXICITY [None]
  - GASTROINTESTINAL DISORDER [None]
  - HEADACHE [None]
  - HYPOCALCAEMIA [None]
  - HYPOPHOSPHATAEMIA [None]
  - HYPOTENSION [None]
  - ILEUS PARALYTIC [None]
  - LIVER FUNCTION TEST ABNORMAL [None]
  - METABOLIC ACIDOSIS [None]
  - MYALGIA [None]
  - MYOPATHY [None]
  - PANCREATITIS [None]
  - PANCYTOPENIA [None]
  - PYREXIA [None]
  - TRANSAMINASES INCREASED [None]
  - VENTRICULAR HYPOKINESIA [None]
  - VOMITING [None]
